FAERS Safety Report 14492466 (Version 1)
Quarter: 2018Q1

REPORT INFORMATION
  Report Type: Spontaneous
  Country: US (occurrence: US)
  Receive Date: 20180205
  Receipt Date: 20180205
  Transmission Date: 20180509
  Serious: Yes (Other)
  Sender: FDA-Public Use
  Company Number: None

PATIENT
  Age: 51 Year
  Sex: Male

DRUGS (1)
  1. CALCIUM CHLORIDE. [Suspect]
     Active Substance: CALCIUM CHLORIDE
     Indication: HYPERKALAEMIA
     Dosage: ?          OTHER FREQUENCY:ONE TIME ONLY;?
     Route: 041
     Dates: start: 20180203

REACTIONS (1)
  - Laboratory test interference [None]

NARRATIVE: CASE EVENT DATE: 20180203
